FAERS Safety Report 7019163-7 (Version None)
Quarter: 2010Q3

REPORT INFORMATION
  Report Type: 
  Country: None (occurrence: None)
  Receive Date: 20100928
  Receipt Date: 20100921
  Transmission Date: 20110219
  Serious: Yes (Death, Hospitalization, Other)
  Sender: FDA-Public Use
  Company Number: US-ELI_LILLY_AND_COMPANY-US201007006949

PATIENT
  Sex: Female

DRUGS (3)
  1. ALIMTA [Suspect]
     Indication: LUNG NEOPLASM MALIGNANT
     Dosage: UNK, UNK
  2. VITAMIN B-12 [Concomitant]
  3. FOLIC ACID [Concomitant]

REACTIONS (3)
  - MALIGNANT NEOPLASM PROGRESSION [None]
  - RIGHT VENTRICULAR FAILURE [None]
  - THROMBOSIS [None]
